FAERS Safety Report 16154069 (Version 3)
Quarter: 2019Q3

REPORT INFORMATION
  Report Type: Report from Study
  Country: DE (occurrence: DE)
  Receive Date: 20190403
  Receipt Date: 20190913
  Transmission Date: 20191004
  Serious: Yes (Hospitalization)
  Sender: FDA-Public Use
  Company Number: DE-SEATTLE GENETICS-2019SGN00940

PATIENT

DRUGS (12)
  1. DOXORUBICIN [Suspect]
     Active Substance: DOXORUBICIN
     Indication: HODGKIN^S DISEASE
     Dosage: 83 MILLIGRAM/SQ. METER
     Route: 065
     Dates: start: 20180312
  2. CYCLOPHOSPHAMIDE. [Suspect]
     Active Substance: CYCLOPHOSPHAMIDE
     Indication: HODGKIN^S DISEASE
     Dosage: 2600 MILLIGRAM/SQ. METER
     Route: 065
     Dates: start: 20190312
  3. DEXAMETHASONE. [Suspect]
     Active Substance: DEXAMETHASONE
     Indication: HODGKIN^S DISEASE
     Dosage: 40 MILLIGRAM/SQ. METER
     Route: 065
     Dates: start: 20190312
  4. TAZOBAC [Concomitant]
     Active Substance: PIPERACILLIN SODIUM\TAZOBACTAM SODIUM
     Dosage: 4/0.5 GRAM, TID
     Route: 065
     Dates: start: 20190323
  5. BRENTUXIMAB VEDOTIN-MPI [Suspect]
     Active Substance: BRENTUXIMAB VEDOTIN
     Indication: HODGKIN^S DISEASE
     Dosage: 161 MILLIGRAM
     Route: 065
     Dates: start: 20190311
  6. ACIC                               /00587301/ [Concomitant]
     Dosage: 1200 MILLIGRAM
     Route: 065
     Dates: start: 20190325
  7. AMPHO-MORONAL [Concomitant]
     Active Substance: AMPHOTERICIN B
     Dosage: UNK
     Route: 065
     Dates: start: 20190325
  8. UNACID PD                          /00903601/ [Concomitant]
     Active Substance: SULTAMICILLIN
     Dosage: 1500 MILLIGRAM
     Route: 065
     Dates: start: 20190327
  9. COTRIM FORTE [Concomitant]
     Active Substance: SULFAMETHOXAZOLE\TRIMETHOPRIM
     Dosage: 960 MILLIGRAM
     Route: 065
     Dates: start: 20181203
  10. DACARBAZINE. [Suspect]
     Active Substance: DACARBAZINE
     Indication: HODGKIN^S DISEASE
     Dosage: 520 MILLIGRAM/SQ. METER
     Route: 065
     Dates: start: 20190313
  11. ETOPOSIDE. [Suspect]
     Active Substance: ETOPOSIDE
     Indication: HODGKIN^S DISEASE
     Dosage: 312 MILLIGRAM/SQ. METER
     Route: 065
     Dates: start: 20190312
  12. CIPROHEXAL                         /00697201/ [Concomitant]
     Dosage: 1000 MILLIGRAM
     Route: 065
     Dates: start: 20190324

REACTIONS (2)
  - Febrile infection [Recovered/Resolved]
  - Leukopenia [Recovered/Resolved]

NARRATIVE: CASE EVENT DATE: 20190323
